FAERS Safety Report 7056563-3 (Version None)
Quarter: 2010Q4

REPORT INFORMATION
  Report Type: 
  Country: None (occurrence: None)
  Receive Date: 20101018
  Receipt Date: 20101001
  Transmission Date: 20110411
  Serious: Yes (Other)
  Sender: FDA-Public Use
  Company Number: 2010003305

PATIENT
  Age: 76 Year
  Sex: Female

DRUGS (9)
  1. TARCEVA [Suspect]
     Indication: NON-SMALL CELL LUNG CANCER
     Dosage: 100 MG, QD, ORAL
     Route: 048
     Dates: start: 20100301
  2. SERLAIN (SERTRALINE) [Concomitant]
  3. ACETYLSALICYLIC ACID SRT [Concomitant]
  4. ALDACTONE [Concomitant]
  5. SIMVASTATIN [Concomitant]
  6. PERINDOPRIL ERBUMINE [Concomitant]
  7. LEXOTAN (BROMAZEPAM) [Concomitant]
  8. ZANTAC [Concomitant]
  9. SPASMOMEN (OTILONIUM BROMIDE) [Concomitant]

REACTIONS (1)
  - CEREBRAL ARTERY EMBOLISM [None]
